FAERS Safety Report 7632967-2 (Version None)
Quarter: 2011Q3

REPORT INFORMATION
  Report Type: 
  Country: None (occurrence: None)
  Receive Date: 20110725
  Receipt Date: 20110713
  Transmission Date: 20111222
  Serious: Yes (Hospitalization)
  Sender: FDA-Public Use
  Company Number: PHHY2011TW63294

PATIENT
  Age: 78 Year
  Sex: Male

DRUGS (1)
  1. ZOLEDRONOC ACID [Suspect]
     Indication: OSTEOPOROSIS
     Dosage: 5 MG/100ML, ONCE PER YEAR
     Route: 042
     Dates: start: 20100426

REACTIONS (2)
  - VASCULAR OCCLUSION [None]
  - PAIN IN EXTREMITY [None]
